FAERS Safety Report 9275999 (Version 1)
Quarter: 2013Q2

REPORT INFORMATION
  Report Type: Spontaneous
  Country: US (occurrence: None)
  Receive Date: 20130502
  Receipt Date: 20130502
  Transmission Date: 20140414
  Serious: Yes (Other)
  Sender: FDA-Public Use
  Company Number: None

PATIENT
  Age: 44 Year
  Sex: Male

DRUGS (1)
  1. TASIGNA [Suspect]
     Route: 048
     Dates: start: 20080306

REACTIONS (5)
  - Headache [None]
  - Rash [None]
  - Fatigue [None]
  - Amnesia [None]
  - Photosensitivity reaction [None]
